FAERS Safety Report 20096940 (Version 1)
Quarter: 2021Q4

REPORT INFORMATION
  Report Type: Spontaneous
  Country: US (occurrence: US)
  Receive Date: 20211122
  Receipt Date: 20211122
  Transmission Date: 20220303
  Serious: No
  Sender: FDA-Public Use
  Company Number: US-BIOGEN-2020BI00866282

PATIENT
  Age: 46 Year
  Sex: Female

DRUGS (3)
  1. TYSABRI [Suspect]
     Active Substance: NATALIZUMAB
     Indication: Multiple sclerosis
     Route: 042
     Dates: start: 20191119, end: 20200420
  2. TYSABRI [Suspect]
     Active Substance: NATALIZUMAB
     Route: 065
     Dates: end: 20200313
  3. TIZANIDINE [Suspect]
     Active Substance: TIZANIDINE
     Indication: Motor dysfunction
     Route: 065

REACTIONS (15)
  - Drug ineffective [Unknown]
  - Memory impairment [Not Recovered/Not Resolved]
  - Cerebral disorder [Not Recovered/Not Resolved]
  - Gait disturbance [Not Recovered/Not Resolved]
  - Hypokinesia [Unknown]
  - Mobility decreased [Unknown]
  - Nervous system disorder [Unknown]
  - Incontinence [Unknown]
  - Illness [Unknown]
  - Asthenia [Unknown]
  - Multiple sclerosis [Unknown]
  - Motor dysfunction [Unknown]
  - Somnolence [Unknown]
  - Fatigue [Unknown]
  - Night sweats [Unknown]

NARRATIVE: CASE EVENT DATE: 20200313
